FAERS Safety Report 6929182-4 (Version None)
Quarter: 2010Q3

REPORT INFORMATION
  Report Type: 
  Country: None (occurrence: None)
  Receive Date: 20100812
  Receipt Date: 20100802
  Transmission Date: 20110219
  Serious: Yes (Death)
  Sender: FDA-Public Use
  Company Number: DKLU1064222

PATIENT
  Sex: 0

DRUGS (1)
  1. COSMEGEN [Suspect]
     Indication: EWING'S SARCOMA
     Dosage: 0.5 MG/M2 MILLIGRAM(S) SQ
     Route: 058

REACTIONS (1)
  - SEPSIS [None]
